FAERS Safety Report 17191119 (Version 2)
Quarter: 2020Q1

REPORT INFORMATION
  Report Type: Report from Study
  Country: US (occurrence: US)
  Receive Date: 20191223
  Receipt Date: 20200212
  Transmission Date: 20200409
  Serious: No
  Sender: FDA-Public Use
  Company Number: US-KYOWAKIRIN-2019BKK020101

PATIENT

DRUGS (1)
  1. NOURIANZ [Suspect]
     Active Substance: ISTRADEFYLLINE
     Indication: PARKINSON^S DISEASE
     Dosage: 20 MG, DAILY
     Route: 048
     Dates: start: 20191211, end: 20200130

REACTIONS (4)
  - Asthenia [Unknown]
  - Adverse drug reaction [Unknown]
  - Muscular weakness [Unknown]
  - Tremor [Unknown]

NARRATIVE: CASE EVENT DATE: 201912
